FAERS Safety Report 5163467-X (Version None)
Quarter: 2006Q4

REPORT INFORMATION
  Report Type: 
  Country: None (occurrence: None)
  Receive Date: 20061204
  Receipt Date: 20061124
  Transmission Date: 20070319
  Serious: Yes (Hospitalization)
  Sender: FDA-Public Use
  Company Number: JP-BRISTOL-MYERS SQUIBB COMPANY-13588942

PATIENT
  Age: 69 Year
  Sex: Female

DRUGS (4)
  1. TAXOL [Suspect]
     Indication: METASTATIC NEOPLASM
     Route: 041
     Dates: start: 20060712, end: 20060712
  2. KYTRIL [Suspect]
     Indication: METASTATIC NEOPLASM
  3. RESTAMIN [Suspect]
     Indication: PREMEDICATION
     Route: 048
  4. DECADRON [Concomitant]
     Route: 041

REACTIONS (1)
  - ANGINA PECTORIS [None]
